FAERS Safety Report 9252764 (Version 2)
Quarter: 2014Q1

REPORT INFORMATION
  Report Type: Spontaneous
  Country: US (occurrence: None)
  Receive Date: 20130305
  Receipt Date: 20140306
  Transmission Date: 20141002
  Serious: Yes (Hospitalization)
  Sender: FDA-Public Use
  Company Number: 163-21880-12063558

PATIENT
  Age: 51 Year
  Sex: Female
  Weight: 82.1 kg

DRUGS (19)
  1. REVLIMID (LENALIDOMIDE) (5 MILLIGRAM, CAPSULES) [Suspect]
     Indication: PLASMA CELL MYELOMA
     Route: 048
     Dates: start: 201201
  2. PANTOPRAZOLE SODIUM [Concomitant]
  3. MAGNESIUM ELEMENTAL [Concomitant]
  4. PHENERGAN (PROMETHAZINE HYDROCHLORIDE) [Concomitant]
  5. METFORMIN HCL (METFORMIN HYDROCHLORIDE) [Concomitant]
  6. JANUVIA (SITAGLIPTIN PHOSPHATE) [Concomitant]
  7. GLIMEPIRIDE [Concomitant]
  8. POTASSIUM [Concomitant]
  9. NITRODUR (GLYCERYL TRINITRATE) [Concomitant]
  10. CARVEDILOL [Concomitant]
  11. LISINOPRIL [Concomitant]
  12. DEXAMETHASONE [Concomitant]
  13. ASPIRIN (ACETYLSALICYLIC ACID) [Concomitant]
  14. OXYCODONE HCL (OXYCODONE HYDROCHLORIDE) [Concomitant]
  15. CEREFOLIN (CEREFOLIN NAC) [Concomitant]
  16. DESYREL (TRAZODONE HYDROCHLORIDE) [Concomitant]
  17. VALIUM (DIAZEPAM) [Concomitant]
  18. WARFARIN SODIUM [Concomitant]
  19. PROZAC (FLUOXETINE HYDROCHLORIDE) [Concomitant]

REACTIONS (2)
  - Thrombosis [None]
  - Pulmonary thrombosis [None]
